FAERS Safety Report 8081628-7 (Version None)
Quarter: 2012Q1

REPORT INFORMATION
  Report Type: 
  Country: None (occurrence: None)
  Receive Date: 20120130
  Receipt Date: 20120124
  Transmission Date: 20120608
  Serious: Yes (Other)
  Sender: FDA-Public Use
  Company Number: US-PFIZER INC-2011311880

PATIENT

DRUGS (2)
  1. TEMSIROLIMUS [Suspect]
     Dosage: UNK
  2. PACLITAXEL [Suspect]

REACTIONS (2)
  - INTERCEPTED DRUG DISPENSING ERROR [None]
  - INJURY [None]
